FAERS Safety Report 11482417 (Version 2)
Quarter: 2015Q3

REPORT INFORMATION
  Report Type: Spontaneous
  Country: JP (occurrence: JP)
  Receive Date: 20150909
  Receipt Date: 20150915
  Transmission Date: 20151125
  Serious: Yes (Other)
  Sender: FDA-Public Use
  Company Number: PHJP2015JP015202

PATIENT
  Age: 76 Year
  Sex: Male

DRUGS (7)
  1. TASIGNA [Suspect]
     Active Substance: NILOTINIB
     Dosage: 200 MG, Q72H
     Route: 048
     Dates: start: 201212
  2. TASIGNA [Suspect]
     Active Substance: NILOTINIB
     Indication: CHRONIC MYELOID LEUKAEMIA
     Dosage: 200 MG, BID
     Route: 048
     Dates: start: 200611, end: 200612
  3. DASATINIB [Suspect]
     Active Substance: DASATINIB
     Indication: PRODUCT USED FOR UNKNOWN INDICATION
     Dosage: 20 MG, QD
     Route: 065
  4. TASIGNA [Suspect]
     Active Substance: NILOTINIB
     Dosage: 200 MG, QD
     Route: 048
     Dates: start: 201010, end: 201010
  5. TASIGNA [Suspect]
     Active Substance: NILOTINIB
     Dosage: 200 MG, Q72H
     Route: 048
     Dates: start: 201012, end: 201012
  6. TASIGNA [Suspect]
     Active Substance: NILOTINIB
     Dosage: 200 MG, Q48H
     Route: 048
     Dates: start: 201011, end: 201011
  7. IMATINIB [Suspect]
     Active Substance: IMATINIB
     Indication: BLAST CRISIS IN MYELOGENOUS LEUKAEMIA
     Dosage: 200 MG, QD
     Route: 065

REACTIONS (5)
  - Blast crisis in myelogenous leukaemia [Unknown]
  - Platelet count decreased [Unknown]
  - Melaena [Unknown]
  - Neutrophil count decreased [Unknown]
  - Pancytopenia [Unknown]

NARRATIVE: CASE EVENT DATE: 200905
